FAERS Safety Report 9050353 (Version 1)
Quarter: 2013Q1

REPORT INFORMATION
  Report Type: Spontaneous
  Country: CA (occurrence: CA)
  Receive Date: 20130205
  Receipt Date: 20130205
  Transmission Date: 20140127
  Serious: Yes (Death, Other)
  Sender: FDA-Public Use
  Company Number: CA-NAPPMUNDI-CAN-2013-0003701

PATIENT
  Sex: Female

DRUGS (1)
  1. HYDROMORPHONE HCL [Suspect]
     Indication: PALLIATIVE CARE
     Dosage: UNK
     Route: 042

REACTIONS (10)
  - Coma [Fatal]
  - Dehydration [Fatal]
  - Starvation [Fatal]
  - Sedation [Fatal]
  - Off label use [Fatal]
  - Skin atrophy [Unknown]
  - Dry skin [Unknown]
  - Dry mouth [Unknown]
  - Agitation [Unknown]
  - Inappropriate schedule of drug administration [Unknown]
